FAERS Safety Report 16673478 (Version 1)
Quarter: 2019Q3

REPORT INFORMATION
  Report Type: Spontaneous
  Country: GB (occurrence: GB)
  Receive Date: 20190806
  Receipt Date: 20190806
  Transmission Date: 20191004
  Serious: Yes (Other)
  Sender: FDA-Public Use
  Company Number: GB-PFIZER INC-2019331610

PATIENT
  Age: 41 Year
  Sex: Male
  Weight: 75.8 kg

DRUGS (8)
  1. FLUOXETINE [Concomitant]
     Active Substance: FLUOXETINE HYDROCHLORIDE
     Dosage: 40 MG, DAILY
     Dates: start: 20190617
  2. LORAZEPAM. [Concomitant]
     Active Substance: LORAZEPAM
     Indication: AGITATION
     Dosage: 1 MG, AS NEEDED, MAXIMUM 4 TABLETS PER DAY
     Dates: start: 20190523
  3. TRIMETHOPRIM. [Concomitant]
     Active Substance: TRIMETHOPRIM
     Dosage: 400 MG, DAILY
     Dates: start: 20190604
  4. BRIVARACETAM [Concomitant]
     Active Substance: BRIVARACETAM
     Dosage: 25 MG, ONE AT NIGHT, INCREASE TO ONE TWICE A DAY AFTER ONE MONTH.
     Dates: start: 20190417, end: 20190604
  5. OTOMIZE [Concomitant]
     Active Substance: DEXAMETHASONE\NEOMYCIN SULFATE
     Dosage: UNK UNK, 3X/DAY
     Dates: start: 20190621
  6. CLOBAZAM. [Concomitant]
     Active Substance: CLOBAZAM
     Dosage: 20 MG, 1X/DAY, FOR TWO WEEKS ONLY.
     Dates: start: 20190517
  7. PREGABALIN. [Suspect]
     Active Substance: PREGABALIN
     Indication: BEHAVIOUR DISORDER
     Dosage: 25 MG, UNK
     Route: 048
  8. PARACETAMOL [Concomitant]
     Active Substance: ACETAMINOPHEN
     Dosage: 500 MG, AS NEEDED, TAKE 1-2 UP TO FOUR TIMES DAILY MAXIMUM 8 TABLETS IN 24HOURS
     Dates: start: 20190604

REACTIONS (1)
  - Priapism [Unknown]

NARRATIVE: CASE EVENT DATE: 20190704
